FAERS Safety Report 10085087 (Version 2)
Quarter: 2014Q2

REPORT INFORMATION
  Report Type: Spontaneous
  Country: US (occurrence: US)
  Receive Date: 20140417
  Receipt Date: 20140417
  Transmission Date: 20141212
  Serious: Yes (Hospitalization)
  Sender: FDA-Public Use
  Company Number: US-ENDO PHARMACEUTICALS INC.-OPCR20130177

PATIENT
  Age: 49 Year
  Sex: Male

DRUGS (2)
  1. OPANA ER 40MG [Suspect]
     Indication: PRODUCT USED FOR UNKNOWN INDICATION
     Route: 048
  2. OPANA ER 40MG [Suspect]
     Route: 048
     Dates: start: 20130402

REACTIONS (3)
  - Recurrent cancer [Not Recovered/Not Resolved]
  - Infection [Recovered/Resolved]
  - Atypical pneumonia [Recovered/Resolved]
